FAERS Safety Report 19425040 (Version 2)
Quarter: 2023Q1

REPORT INFORMATION
  Report Type: Other
  Country: US (occurrence: None)
  Receive Date: 20210617
  Receipt Date: 20230130
  Transmission Date: 20230418
  Serious: Yes (Hospitalization)
  Sender: FDA-Public Use
  Company Number: US-ROCHE-2781634

PATIENT
  Age: 52 Year
  Sex: Female

DRUGS (5)
  1. ACTEMRA [Suspect]
     Active Substance: TOCILIZUMAB
     Indication: Iridocyclitis
     Dosage: ACTEMRA SDV 200MG/10ML
     Route: 042
     Dates: start: 202002
  2. ACTEMRA [Suspect]
     Active Substance: TOCILIZUMAB
     Route: 042
     Dates: start: 201910, end: 202105
  3. ACTEMRA [Suspect]
     Active Substance: TOCILIZUMAB
     Route: 042
     Dates: start: 202204
  4. CELLCEPT [Suspect]
     Active Substance: MYCOPHENOLATE MOFETIL
     Indication: Product used for unknown indication
     Route: 065
  5. RITUXAN [Suspect]
     Active Substance: RITUXIMAB
     Indication: Iridocyclitis
     Route: 065
     Dates: start: 202106, end: 202106

REACTIONS (7)
  - Off label use [Unknown]
  - Off label use [Unknown]
  - Infection [Recovered/Resolved]
  - Skin ulcer [Recovered/Resolved]
  - COVID-19 [Not Recovered/Not Resolved]
  - Eye disorder [Not Recovered/Not Resolved]
  - Pain [Not Recovered/Not Resolved]

NARRATIVE: CASE EVENT DATE: 20191001
